FAERS Safety Report 17765393 (Version 1)
Quarter: 2020Q2

REPORT INFORMATION
  Report Type: Spontaneous
  Country: US (occurrence: US)
  Receive Date: 20200508
  Receipt Date: 20200508
  Transmission Date: 20200714
  Serious: No
  Sender: FDA-Public Use
  Company Number: None

PATIENT
  Age: 26 Year
  Sex: Female
  Weight: 60.75 kg

DRUGS (2)
  1. ETONOGESTREL/ETHINYL ESTRADIOL [Suspect]
     Active Substance: ETHINYL ESTRADIOL\ETONOGESTREL
     Indication: CONTRACEPTION
     Dosage: ?          QUANTITY:1 0.015MG PER DAY;OTHER FREQUENCY:ONCE EVERY 3 WEEKS;?
     Route: 067
     Dates: start: 20200420, end: 20200427
  2. CONCERTA [Suspect]
     Active Substance: METHYLPHENIDATE HYDROCHLORIDE

REACTIONS (4)
  - Product substitution issue [None]
  - Vomiting [None]
  - Pain [None]
  - Headache [None]

NARRATIVE: CASE EVENT DATE: 20200429
